FAERS Safety Report 17291561 (Version 1)
Quarter: 2020Q1

REPORT INFORMATION
  Report Type: Spontaneous
  Country: US (occurrence: US)
  Receive Date: 20200117
  Receipt Date: 20200117
  Transmission Date: 20200409
  Serious: Yes (Disabling)
  Sender: FDA-Public Use
  Company Number: None

PATIENT
  Age: 60 Year
  Sex: Female
  Weight: 76.05 kg

DRUGS (6)
  1. CHOLESTEROL [Concomitant]
     Active Substance: CHOLESTEROL
  2. BP [Concomitant]
     Active Substance: CYCLOMETHICONE 5
  3. TALTZ [Concomitant]
     Active Substance: IXEKIZUMAB
  4. BI-POLAR [Concomitant]
  5. GENERIC TYLENOL [Concomitant]
  6. RECLAST [Suspect]
     Active Substance: ZOLEDRONIC ACID
     Indication: OSTEOPOROSIS
     Dates: start: 20200113

REACTIONS (10)
  - Confusional state [None]
  - Muscle spasms [None]
  - Neck pain [None]
  - Weight decreased [None]
  - Pain [None]
  - Loss of personal independence in daily activities [None]
  - Hyperhidrosis [None]
  - Asthenia [None]
  - Headache [None]
  - Back pain [None]

NARRATIVE: CASE EVENT DATE: 20200114
